FAERS Safety Report 4312711-7 (Version None)
Quarter: 2004Q1

REPORT INFORMATION
  Report Type: 
  Country: None (occurrence: None)
  Receive Date: 20040302
  Receipt Date: 20031120
  Transmission Date: 20041129
  Serious: No
  Sender: FDA-Public Use
  Company Number: 701336

PATIENT
  Age: 37 Year
  Sex: Female

DRUGS (2)
  1. AMEVIVE [Suspect]
     Indication: PSORIASIS
     Dosage: 15 MG QW IM
     Dates: start: 20031020, end: 20031101
  2. AMEVIVE [Suspect]
     Indication: PSORIASIS
     Dosage: 15 MG IM
     Dates: start: 20031101

REACTIONS (3)
  - COUGH [None]
  - INFLUENZA LIKE ILLNESS [None]
  - MYALGIA [None]
